FAERS Safety Report 8557979-6 (Version None)
Quarter: 2012Q3

REPORT INFORMATION
  Report Type: 
  Country: None (occurrence: None)
  Receive Date: 20120801
  Receipt Date: 20120725
  Transmission Date: 20120928
  Serious: Yes (Other)
  Sender: FDA-Public Use
  Company Number: JP-VERTEX PHARMACEUTICALS INC.-AE-2012-001521

PATIENT
  Age: 55 Year
  Sex: Male

DRUGS (17)
  1. PEG-INTRON [Concomitant]
     Route: 058
     Dates: start: 20120125, end: 20120125
  2. SELBEX [Concomitant]
     Route: 048
     Dates: start: 20120120
  3. XYZAL [Concomitant]
     Route: 048
     Dates: start: 20120120
  4. TELAVIC (TELAPREVIR) [Suspect]
     Indication: HEPATITIS C
     Route: 048
     Dates: start: 20120111, end: 20120125
  5. DEPAS [Concomitant]
     Route: 048
  6. KETOBUN [Concomitant]
     Route: 048
  7. REBETOL [Concomitant]
     Route: 048
     Dates: start: 20120612, end: 20120625
  8. PEG-INTRON [Concomitant]
     Indication: HEPATITIS C
     Route: 058
     Dates: start: 20120111, end: 20120118
  9. LOSARTAN POTASSIUM [Concomitant]
     Route: 048
  10. JANUVIA [Concomitant]
     Route: 048
  11. PEG-INTRON [Concomitant]
     Route: 058
     Dates: start: 20120612, end: 20120612
  12. LIVALO [Concomitant]
     Route: 048
  13. ALLOPURINOL [Concomitant]
     Route: 048
     Dates: start: 20120127
  14. URSO 250 [Concomitant]
     Route: 048
  15. XYZAL [Concomitant]
     Route: 048
     Dates: start: 20120120
  16. REBETOL [Concomitant]
     Indication: HEPATITIS C
     Route: 048
     Dates: start: 20120111, end: 20120125
  17. AMOBAN [Concomitant]
     Route: 048

REACTIONS (5)
  - NEUTROPHIL COUNT DECREASED [None]
  - LEUKOPENIA [None]
  - NEUTROPENIA [None]
  - PYREXIA [None]
  - THROMBOCYTOPENIA [None]
